FAERS Safety Report 13067783 (Version 1)
Quarter: 2016Q4

REPORT INFORMATION
  Report Type: Spontaneous
  Country: US (occurrence: US)
  Receive Date: 20161227
  Receipt Date: 20161227
  Transmission Date: 20170207
  Serious: Yes (Death)
  Sender: FDA-Public Use
  Company Number: None

PATIENT
  Age: 64 Year
  Sex: Male

DRUGS (1)
  1. CAPECITABINE 500MG [Suspect]
     Active Substance: CAPECITABINE
     Indication: CHOLANGIOCARCINOMA
     Dosage: 1500MG TWICE DAILY X7 BY MOUTH
     Route: 048
     Dates: start: 20161110

REACTIONS (1)
  - Death [None]

NARRATIVE: CASE EVENT DATE: 20161209
